FAERS Safety Report 7299792-6 (Version None)
Quarter: 2011Q1

REPORT INFORMATION
  Report Type: 
  Country: None (occurrence: None)
  Receive Date: 20110208
  Receipt Date: 20110128
  Transmission Date: 20110831
  Serious: Yes (Hospitalization, Other)
  Sender: FDA-Public Use
  Company Number: 2007-02252

PATIENT
  Age: 44 Year
  Sex: Female
  Weight: 70 kg

DRUGS (7)
  1. FAMOTIDINE [Concomitant]
  2. PREDNISOLONE [Concomitant]
  3. DEXAMETHASONE [Concomitant]
  4. ALFAROL (ALFACALCIDOL) [Concomitant]
  5. VELCADE [Suspect]
     Indication: MULTIPLE MYELOMA
     Dosage: 2.00 MG; INTRAVENOUS, 1.70 MG; INTRAVENOUS
     Route: 042
     Dates: start: 20070604, end: 20070614
  6. VELCADE [Suspect]
     Indication: MULTIPLE MYELOMA
     Dosage: 2.00 MG; INTRAVENOUS, 1.70 MG; INTRAVENOUS
     Route: 042
     Dates: start: 20070716, end: 20070726
  7. PLATELETS, HUMAN BLOOD (PLATELETS, HUMAN BLOOD) [Concomitant]

REACTIONS (10)
  - PAROTITIS [None]
  - DRUG HYPERSENSITIVITY [None]
  - NAUSEA [None]
  - HERPES ZOSTER [None]
  - PLATELET COUNT DECREASED [None]
  - WHITE BLOOD CELL COUNT DECREASED [None]
  - PAIN [None]
  - HYPOAESTHESIA [None]
  - NEURALGIA [None]
  - DIARRHOEA [None]
